FAERS Safety Report 13982372 (Version 1)
Quarter: 2017Q3

REPORT INFORMATION
  Report Type: Spontaneous
  Country: PR (occurrence: PR)
  Receive Date: 20170918
  Receipt Date: 20170918
  Transmission Date: 20171128
  Serious: No
  Sender: FDA-Public Use
  Company Number: PR-PFIZER INC-2017401522

PATIENT
  Age: 15 Year
  Sex: Male
  Weight: 56 kg

DRUGS (1)
  1. GENOTROPIN [Suspect]
     Active Substance: SOMATROPIN
     Dosage: 0.2 (UNIT NOT PROVIDED), 1X/DAY, 6X/WEEK
     Dates: start: 20170507, end: 20170824

REACTIONS (1)
  - Tremor [Unknown]
